FAERS Safety Report 25052815 (Version 4)
Quarter: 2025Q4

REPORT INFORMATION
  Report Type: Spontaneous
  Country: US (occurrence: US)
  Receive Date: 20250307
  Receipt Date: 20251106
  Transmission Date: 20260118
  Serious: Yes (Hospitalization)
  Sender: SANOFI AVENTIS
  Company Number: US-SA-2025SA062882

PATIENT
  Age: 63 Year
  Sex: Male

DRUGS (7)
  1. REZUROCK [Suspect]
     Active Substance: BELUMOSUDIL
     Indication: Bone marrow transplant
     Dosage: 200 MG, QD
     Route: 048
     Dates: start: 202502
  2. REZUROCK [Suspect]
     Active Substance: BELUMOSUDIL
     Dosage: UNK, QOD
     Dates: start: 2025
  3. ACYCLOVIR [Concomitant]
     Active Substance: ACYCLOVIR
     Dosage: 400 MG
     Route: 048
  4. LEVOFLOXACIN [Concomitant]
     Active Substance: LEVOFLOXACIN
     Dosage: UNK
  5. MAGNESIUM [Concomitant]
     Active Substance: MAGNESIUM
     Dosage: UNK
  6. VORICONAZOLE [Concomitant]
     Active Substance: VORICONAZOLE
     Dosage: UNK
  7. ATOVAQUONE [Concomitant]
     Active Substance: ATOVAQUONE
     Dosage: UNK

REACTIONS (5)
  - Hospitalisation [Unknown]
  - Rash pruritic [Recovering/Resolving]
  - Fatigue [Unknown]
  - Product use in unapproved indication [Unknown]
  - Inappropriate schedule of product administration [Unknown]

NARRATIVE: CASE EVENT DATE: 20250101
